FAERS Safety Report 18272045 (Version 5)
Quarter: 2023Q2

REPORT INFORMATION
  Report Type: Other
  Country: JP (occurrence: JP)
  Receive Date: 20200916
  Receipt Date: 20230417
  Transmission Date: 20230722
  Serious: Yes (Other)
  Sender: FDA-Public Use
  Company Number: JP-ROCHE-2675766

PATIENT
  Age: 57 Year
  Sex: Male
  Weight: 75 kg

DRUGS (23)
  1. OBINUTUZUMAB [Suspect]
     Active Substance: OBINUTUZUMAB
     Indication: Follicular lymphoma
     Dosage: MOST RECENT DOSE 24/DEC/2019
     Route: 041
     Dates: start: 20191224
  2. OBINUTUZUMAB [Suspect]
     Active Substance: OBINUTUZUMAB
     Dosage: MOST RECENT DOSE 02/JAN/2020
     Route: 041
     Dates: start: 20200102
  3. OBINUTUZUMAB [Suspect]
     Active Substance: OBINUTUZUMAB
     Dosage: MOST RECENT DOSE 09/JAN/2020
     Route: 041
     Dates: start: 20200109
  4. OBINUTUZUMAB [Suspect]
     Active Substance: OBINUTUZUMAB
     Dosage: MOST RECENT DOSE 23/JAN/2020
     Route: 041
     Dates: start: 20200123
  5. OBINUTUZUMAB [Suspect]
     Active Substance: OBINUTUZUMAB
     Dosage: MOST RECENT DOSE 20/FEB/2020
     Route: 041
     Dates: start: 20200220
  6. OBINUTUZUMAB [Suspect]
     Active Substance: OBINUTUZUMAB
     Dosage: MOST RECENT DOSE 07/APR/2020
     Route: 041
     Dates: start: 20200407
  7. OBINUTUZUMAB [Suspect]
     Active Substance: OBINUTUZUMAB
     Dosage: MOST RECENT DOSE 05/OCT/2022
     Route: 041
     Dates: start: 20221005
  8. OBINUTUZUMAB [Suspect]
     Active Substance: OBINUTUZUMAB
     Dosage: MOST RECENT DOSE 14/OCT/2022
     Route: 041
     Dates: start: 20221014
  9. OBINUTUZUMAB [Suspect]
     Active Substance: OBINUTUZUMAB
     Dosage: MOST RECENT DOSE 21/OCT/2022
     Route: 041
     Dates: start: 20221021
  10. OBINUTUZUMAB [Suspect]
     Active Substance: OBINUTUZUMAB
     Dosage: MOST RECENT DOSE 07/NOV/2022
     Route: 041
     Dates: start: 20221107
  11. OBINUTUZUMAB [Suspect]
     Active Substance: OBINUTUZUMAB
     Dosage: MOST RECENT DOSE 12/DEC/2022
     Route: 041
     Dates: start: 20221212
  12. RITUXIMAB [Suspect]
     Active Substance: RITUXIMAB
     Indication: Follicular lymphoma
     Route: 041
  13. BENDAMUSTINE HYDROCHLORIDE [Concomitant]
     Active Substance: BENDAMUSTINE HYDROCHLORIDE
     Indication: Follicular lymphoma
     Dosage: DOSAGE IS UNCERTAIN.
     Route: 041
     Dates: start: 20191226, end: 20200408
  14. CYCLOPHOSPHAMIDE [Concomitant]
     Active Substance: CYCLOPHOSPHAMIDE
     Indication: Follicular lymphoma
     Route: 042
  15. DOXORUBICIN HYDROCHLORIDE [Concomitant]
     Active Substance: DOXORUBICIN HYDROCHLORIDE
     Indication: Follicular lymphoma
     Route: 042
  16. VINCRISTINE SULFATE [Concomitant]
     Active Substance: VINCRISTINE SULFATE
     Indication: Follicular lymphoma
     Route: 042
  17. PREDNISOLONE [Concomitant]
     Active Substance: PREDNISOLONE
     Indication: Follicular lymphoma
     Route: 048
  18. ETOPOSIDE [Concomitant]
     Active Substance: ETOPOSIDE
     Indication: Follicular lymphoma
     Route: 042
  19. CYTARABINE [Concomitant]
     Active Substance: CYTARABINE
     Indication: Follicular lymphoma
     Route: 042
  20. CISPLATIN [Concomitant]
     Active Substance: CISPLATIN
     Indication: Follicular lymphoma
     Route: 042
  21. METHYLPREDNISOLONE SODIUM SUCCINATE [Concomitant]
     Active Substance: METHYLPREDNISOLONE SODIUM SUCCINATE
     Indication: Follicular lymphoma
     Route: 042
  22. BENDAMUSTINE HYDROCHLORIDE [Concomitant]
     Active Substance: BENDAMUSTINE HYDROCHLORIDE
     Indication: Follicular lymphoma
     Route: 042
     Dates: start: 20191226, end: 20200408
  23. BENDAMUSTINE HYDROCHLORIDE [Concomitant]
     Active Substance: BENDAMUSTINE HYDROCHLORIDE
     Route: 042

REACTIONS (4)
  - Myelosuppression [Unknown]
  - Decreased immune responsiveness [Unknown]
  - Infusion related reaction [Unknown]
  - Follicular lymphoma [Unknown]
